FAERS Safety Report 7768543-0 (Version None)
Quarter: 2011Q3

REPORT INFORMATION
  Report Type: 
  Country: None (occurrence: None)
  Receive Date: 20110922
  Receipt Date: 20101110
  Transmission Date: 20111222
  Serious: No
  Sender: FDA-Public Use
  Company Number: US-ASTRAZENECA-2008UW02184

PATIENT
  Age: 33 Year
  Sex: Female
  Weight: 55.8 kg

DRUGS (20)
  1. SEROQUEL [Suspect]
     Route: 048
  2. ATIVAN [Concomitant]
  3. ROBITUSSIN TYPE MED [Concomitant]
     Dosage: AT NIGHT
  4. SEROQUEL [Suspect]
     Indication: SLEEP DISORDER
     Route: 048
     Dates: start: 20050101
  5. SEROQUEL [Suspect]
     Indication: BIPOLAR II DISORDER
     Route: 048
     Dates: start: 20050101
  6. SEROQUEL [Suspect]
     Route: 048
  7. SEROQUEL [Suspect]
     Route: 048
     Dates: start: 20050101, end: 20050101
  8. SEROQUEL [Suspect]
     Route: 048
     Dates: start: 20100721
  9. SEROQUEL [Suspect]
     Route: 048
  10. PRENATAL VITAMINS [Concomitant]
  11. PROGESTERONE [Concomitant]
  12. SEROQUEL [Suspect]
     Route: 048
     Dates: start: 20050101, end: 20100721
  13. SEROQUEL [Suspect]
     Route: 048
  14. SEROQUEL [Suspect]
     Dosage: 50 MG IN THE MORNING, 50 MG AT DINNER, 50 MG AT 7 PM AND 200 MG AT NIGHT
     Route: 048
  15. SEROQUEL [Suspect]
     Route: 048
  16. SEROQUEL [Suspect]
     Route: 048
     Dates: start: 20050101, end: 20050101
  17. SEROQUEL [Suspect]
     Route: 048
     Dates: start: 20100721
  18. SEROQUEL [Suspect]
     Dosage: 50 MG IN THE MORNING, 50 MG AT DINNER, 50 MG AT 7 PM AND 200 MG AT NIGHT
     Route: 048
  19. SEROQUEL [Suspect]
     Route: 048
     Dates: start: 20050101, end: 20100721
  20. SEROQUEL [Suspect]
     Route: 048

REACTIONS (19)
  - SOMNOLENCE [None]
  - TACHYCARDIA [None]
  - DEPRESSION [None]
  - RESTLESS LEGS SYNDROME [None]
  - THERAPEUTIC RESPONSE UNEXPECTED [None]
  - SYNCOPE [None]
  - PANIC ATTACK [None]
  - CONTUSION [None]
  - INSOMNIA [None]
  - MANIA [None]
  - NIGHTMARE [None]
  - BLOOD GLUCOSE INCREASED [None]
  - IRRITABILITY [None]
  - PSYCHOMOTOR HYPERACTIVITY [None]
  - NASAL CONGESTION [None]
  - ANXIETY [None]
  - NEGATIVE THOUGHTS [None]
  - PALPITATIONS [None]
  - DYSPNOEA [None]
